FAERS Safety Report 15206632 (Version 2)
Quarter: 2018Q3

REPORT INFORMATION
  Report Type: Spontaneous
  Country: US (occurrence: US)
  Receive Date: 20180727
  Receipt Date: 20180802
  Transmission Date: 20181010
  Serious: No
  Sender: FDA-Public Use
  Company Number: US-PFIZER INC-2018301662

PATIENT
  Age: 51 Year
  Sex: Female
  Weight: 72.56 kg

DRUGS (9)
  1. CLONAZEPAM. [Concomitant]
     Active Substance: CLONAZEPAM
     Indication: ANXIETY
     Dosage: 2 MG, 3X/DAY (2MG TABLET TWICE A DAY AND ANOTHER TABLET AN HOUR BEFORE DINNER)
     Route: 048
  2. SEROQUEL [Concomitant]
     Active Substance: QUETIAPINE FUMARATE
     Indication: ANXIETY
     Dosage: 300 MG, 1X/DAY (AT NIGHT)
     Route: 048
  3. LYRICA [Suspect]
     Active Substance: PREGABALIN
     Indication: NERVE INJURY
  4. LYRICA [Suspect]
     Active Substance: PREGABALIN
     Indication: PAIN
     Dosage: 75 MG, 3X/DAY (ONE CAPSULE EVERY 8 HOURS)
     Route: 048
     Dates: start: 20180720, end: 20180722
  5. ZOLOFT [Concomitant]
     Active Substance: SERTRALINE HYDROCHLORIDE
     Indication: POST-TRAUMATIC STRESS DISORDER
     Dosage: 250 MG, DAILY (TWO 100MG TABLETS AND ONE 50MG TABLET)
     Route: 048
  6. GABAPENTIN. [Suspect]
     Active Substance: GABAPENTIN
     Indication: PAIN
     Dosage: 800 MG, 3X/DAY (2 CAPSULES EVERY 8 HOURS)
     Route: 048
  7. ZOLOFT [Concomitant]
     Active Substance: SERTRALINE HYDROCHLORIDE
     Indication: ANXIETY
  8. ALPRAZOLAM. [Concomitant]
     Active Substance: ALPRAZOLAM
     Indication: ANXIETY
     Dosage: 2 MG, 4X/DAY
     Route: 048
  9. SEROQUEL [Concomitant]
     Active Substance: QUETIAPINE FUMARATE
     Indication: SLEEP DISORDER
     Dosage: UNK UNK, AS NEEDED (1?2 TABLETS DAILY)
     Route: 048

REACTIONS (8)
  - Panic reaction [Unknown]
  - Overdose [Unknown]
  - Pruritus [Recovered/Resolved]
  - Somnolence [Recovering/Resolving]
  - Emotional poverty [Unknown]
  - Vomiting [Recovered/Resolved with Sequelae]
  - Product use in unapproved indication [Unknown]
  - Clumsiness [Recovered/Resolved with Sequelae]

NARRATIVE: CASE EVENT DATE: 20180720
